FAERS Safety Report 13957878 (Version 1)
Quarter: 2017Q3

REPORT INFORMATION
  Report Type: Spontaneous
  Country: GB (occurrence: GB)
  Receive Date: 20170912
  Receipt Date: 20170912
  Transmission Date: 20171128
  Serious: Yes (Other)
  Sender: FDA-Public Use
  Company Number: GB-TAKEDA-2017TUS018786

PATIENT
  Age: 52 Year
  Sex: Male
  Weight: 101 kg

DRUGS (2)
  1. QUETIAPINE FUMARATE. [Concomitant]
     Active Substance: QUETIAPINE FUMARATE
     Indication: PRODUCT USED FOR UNKNOWN INDICATION
     Dosage: UNK
     Route: 065
  2. BRINTELLIX [Suspect]
     Active Substance: VORTIOXETINE HYDROBROMIDE
     Indication: MENTAL DISORDER
     Dosage: 10 MG, UNK
     Route: 048
     Dates: start: 20170818

REACTIONS (8)
  - Product use in unapproved indication [Unknown]
  - Crying [Unknown]
  - Poor quality sleep [Unknown]
  - Drug ineffective [Unknown]
  - Hyperhidrosis [Unknown]
  - Cough [Not Recovered/Not Resolved]
  - Dysgeusia [Unknown]
  - Salivary hypersecretion [Unknown]

NARRATIVE: CASE EVENT DATE: 20170818
